FAERS Safety Report 5102258-2 (Version None)
Quarter: 2006Q3

REPORT INFORMATION
  Report Type: 
  Country: None (occurrence: None)
  Receive Date: 20060912
  Receipt Date: 20060902
  Transmission Date: 20061208
  Serious: Yes (Hospitalization)
  Sender: FDA-Public Use
  Company Number: AU-JNJFOC-20060900712

PATIENT
  Age: 23 Year
  Sex: Female

DRUGS (4)
  1. RISPERDAL [Suspect]
  2. RISPERDAL [Suspect]
  3. RISPERDAL [Suspect]
     Indication: PSYCHOTIC DISORDER
  4. ZOLOFT [Concomitant]

REACTIONS (1)
  - FEBRILE NEUTROPENIA [None]
